FAERS Safety Report 10947332 (Version 1)
Quarter: 2015Q1

REPORT INFORMATION
  Report Type: Spontaneous
  Country: US (occurrence: US)
  Receive Date: 20150323
  Receipt Date: 20150323
  Transmission Date: 20150721
  Serious: Yes (Death, Other)
  Sender: FDA-Public Use
  Company Number: US-BAXTER-2015BAX014965

PATIENT
  Age: 31 Year
  Sex: Female

DRUGS (2)
  1. AMPICILLIN [Suspect]
     Active Substance: AMPICILLIN
     Indication: ENDOCARDITIS ENTEROCOCCAL
     Route: 065
  2. VANCOMYCIN INJECTION, USP [Suspect]
     Active Substance: VANCOMYCIN
     Indication: ENDOCARDITIS ENTEROCOCCAL
     Route: 042

REACTIONS (3)
  - Brain death [Fatal]
  - Deep vein thrombosis [Unknown]
  - Cardiac arrest [Not Recovered/Not Resolved]
